FAERS Safety Report 8373111-6 (Version None)
Quarter: 2012Q2

REPORT INFORMATION
  Report Type: 
  Country: None (occurrence: None)
  Receive Date: 20120521
  Receipt Date: 20120515
  Transmission Date: 20120825
  Serious: Yes (Hospitalization, Other)
  Sender: FDA-Public Use
  Company Number: US-PFIZER INC-2012073671

PATIENT
  Sex: Female

DRUGS (9)
  1. LYRICA [Suspect]
     Indication: FIBROMYALGIA
     Dosage: 150 MG, 2X/DAY
     Route: 048
     Dates: start: 20101208
  2. VALIUM [Concomitant]
     Indication: ANXIETY
     Dosage: 5 MG, 2X/DAY
     Route: 048
  3. BUSPIRONE HYDROCHLORIDE [Concomitant]
     Indication: ANXIETY
     Dosage: 15 MG, TAKE 1-2 TAB BY ORAL ROUTE Q 6-12 HRS PRN
     Route: 048
  4. SALBUTAMOL SULFATE [Concomitant]
     Dosage: 2 PUFFS EVERY 4-6 HRS AS NEEDED
     Route: 055
  5. PRILOSEC [Concomitant]
     Dosage: 20 MG, 1X/DAY EVERY DAY 30 MINUTES
     Route: 048
  6. FLEXERIL [Concomitant]
     Dosage: 10 MG, 2X/DAY
     Route: 048
  7. NORCO [Concomitant]
     Indication: PAIN
     Dosage: 5MG-325MG TAKE 1 TAB  EVERY 6 HRS AS NEEDED
     Route: 048
  8. VALIUM [Concomitant]
     Indication: MUSCLE SPASMS
  9. EFFEXOR XR [Concomitant]
     Dosage: 150 MG, 1X/DAY
     Route: 048

REACTIONS (5)
  - RESPIRATORY FAILURE [None]
  - DISORIENTATION [None]
  - PNEUMONIA [None]
  - BACK PAIN [None]
  - ANXIETY [None]
